FAERS Safety Report 11432600 (Version 1)
Quarter: 2015Q3

REPORT INFORMATION
  Report Type: Report from Study
  Country: NZ (occurrence: NZ)
  Receive Date: 20150828
  Receipt Date: 20150828
  Transmission Date: 20151125
  Serious: Yes (Other)
  Sender: FDA-Public Use
  Company Number: NZ-ASTRAZENECA-2015SE80738

PATIENT
  Age: 58 Year
  Sex: Female

DRUGS (4)
  1. METOPROLOL [Concomitant]
     Active Substance: METOPROLOL
     Route: 048
  2. STATIN [Concomitant]
     Active Substance: UNSPECIFIED INGREDIENT
     Route: 048
  3. BRILINTA [Suspect]
     Active Substance: TICAGRELOR
     Indication: CARDIAC DISORDER
     Route: 048
     Dates: start: 201504
  4. VITAMIN C [Concomitant]
     Active Substance: ASCORBIC ACID
     Route: 048

REACTIONS (3)
  - Haematoma [Not Recovered/Not Resolved]
  - Angina pectoris [Not Recovered/Not Resolved]
  - Contusion [Not Recovered/Not Resolved]
